FAERS Safety Report 8786404 (Version 2)
Quarter: 2013Q4

REPORT INFORMATION
  Report Type: Spontaneous
  Country: US (occurrence: US)
  Receive Date: 20120914
  Receipt Date: 20131101
  Transmission Date: 20140711
  Serious: Yes (Hospitalization, Other)
  Sender: FDA-Public Use
  Company Number: US-009507513-1209USA003460

PATIENT
  Age: 56 Year
  Sex: Male

DRUGS (19)
  1. ISENTRESS [Suspect]
     Route: 048
  2. LYRICA [Suspect]
     Route: 048
  3. VANCOMYCIN [Suspect]
     Dosage: UNK
     Route: 042
  4. TRUVADA [Suspect]
     Route: 048
  5. CLAFORAN [Suspect]
     Dosage: UNK
     Route: 048
  6. INEXIUM [Suspect]
     Route: 048
  7. ISOPTIN [Suspect]
     Route: 048
  8. TERCIAN [Suspect]
     Route: 048
  9. ZYPREXA [Suspect]
     Route: 048
  10. RIVOTRIL [Suspect]
     Route: 048
  11. NICOPATCH [Suspect]
     Dosage: 21 MG, QD
     Route: 062
  12. MAG 2 [Suspect]
     Route: 048
  13. IMOVANE [Suspect]
     Route: 048
  14. SERETIDE [Suspect]
     Route: 055
  15. DOLIPRANE [Suspect]
     Route: 048
  16. THIAMINE [Suspect]
     Route: 048
  17. PYRIDOXINE [Suspect]
     Route: 048
  18. FLAGYL [Suspect]
     Dosage: UNK
     Route: 048
  19. LEDERFOLINE [Suspect]
     Route: 048

REACTIONS (1)
  - Thrombocytopenia [Unknown]
